FAERS Safety Report 10057066 (Version 1)
Quarter: 2014Q2

REPORT INFORMATION
  Report Type: Spontaneous
  Country: AU (occurrence: AU)
  Receive Date: 20140403
  Receipt Date: 20140403
  Transmission Date: 20141212
  Serious: Yes (Other)
  Sender: FDA-Public Use
  Company Number: AU-ELI_LILLY_AND_COMPANY-AU201403010547

PATIENT
  Age: 88 Year
  Sex: Male

DRUGS (3)
  1. OLANZAPINE [Suspect]
     Indication: PRODUCT USED FOR UNKNOWN INDICATION
     Dosage: 5 MG, PRN
     Route: 065
     Dates: start: 20130815
  2. QUETIAPINE [Suspect]
     Indication: PRODUCT USED FOR UNKNOWN INDICATION
     Dosage: 25 MG, QD
     Route: 065
     Dates: start: 20130815
  3. RISPERIDONE [Suspect]
     Indication: PRODUCT USED FOR UNKNOWN INDICATION
     Dosage: 0.3 MG, UNKNOWN
     Route: 065
     Dates: start: 20130815

REACTIONS (3)
  - Blood creatine phosphokinase increased [Recovered/Resolved]
  - Aggression [Recovered/Resolved]
  - Cogwheel rigidity [Recovered/Resolved]
